FAERS Safety Report 16906082 (Version 1)
Quarter: 2019Q4

REPORT INFORMATION
  Report Type: Spontaneous
  Country: CA (occurrence: CA)
  Receive Date: 20191010
  Receipt Date: 20191010
  Transmission Date: 20200122
  Serious: Yes (Other)
  Sender: FDA-Public Use
  Company Number: CA-AUROBINDO-AUR-APL-2019-065077

PATIENT
  Age: 80 Year
  Sex: Male
  Weight: 69 kg

DRUGS (3)
  1. REMICADE [Suspect]
     Active Substance: INFLIXIMAB
     Indication: CROHN^S DISEASE
     Dosage: 400.0 MILLIGRAM, 1 EVERY 8 WEEKS
     Route: 042
  2. REMICADE [Suspect]
     Active Substance: INFLIXIMAB
     Indication: CROHN^S DISEASE
     Dosage: 5.0 MILLIGRAM/KILOGRAM, 1 EVERY 8 WEEKS
     Route: 042
  3. AMOXICILLIN. [Suspect]
     Active Substance: AMOXICILLIN
     Indication: PNEUMONIA
     Dosage: 500.0 MILLIGRAM
     Route: 065

REACTIONS (3)
  - Pneumonia [Not Recovered/Not Resolved]
  - Decreased appetite [Not Recovered/Not Resolved]
  - Frequent bowel movements [Not Recovered/Not Resolved]
